FAERS Safety Report 5062325-9 (Version None)
Quarter: 2006Q3

REPORT INFORMATION
  Report Type: 
  Country: None (occurrence: None)
  Receive Date: 20060721
  Receipt Date: 20060711
  Transmission Date: 20061208
  Serious: Yes (Congenital Anomaly, Other)
  Sender: FDA-Public Use
  Company Number: 2006086841

PATIENT

DRUGS (3)
  1. ZOLOFT [Suspect]
     Indication: DEPRESSION
     Dosage: 50 MG (1 IN 1 D), UNKNOWN
     Dates: end: 20060308
  2. ABILIFY [Suspect]
     Indication: SCHIZOPHRENIA, PARANOID TYPE
     Dosage: 15 MG, UNKNOWN
  3. DIPIPERON (PIPAMPERONE) [Suspect]
     Indication: RESTLESSNESS
     Dosage: 120 MG, UNKNOWN
     Dates: end: 20060308

REACTIONS (8)
  - ALPHA 1 FOETOPROTEIN AMNIOTIC FLUID INCREASED [None]
  - DRUG EXPOSURE DURING PREGNANCY [None]
  - FOETAL DISORDER [None]
  - MICROCEPHALY [None]
  - PREGNANCY [None]
  - RESTLESSNESS [None]
  - SCHIZOPHRENIA, PARANOID TYPE [None]
  - SPINAL DEFORMITY [None]
